FAERS Safety Report 19762036 (Version 1)
Quarter: 2021Q3

REPORT INFORMATION
  Report Type: Spontaneous
  Country: US (occurrence: US)
  Receive Date: 20210830
  Receipt Date: 20210830
  Transmission Date: 20211014
  Serious: No
  Sender: FDA-Public Use
  Company Number: US-SA-2021SA283289

PATIENT
  Age: 87 Year
  Sex: Female

DRUGS (9)
  1. DUPIXENT [Suspect]
     Active Substance: DUPILUMAB
     Indication: DERMATITIS ATOPIC
     Dosage: 300 MG, QOW
     Route: 058
     Dates: start: 20200723
  2. CLOBETASOL [Concomitant]
     Active Substance: CLOBETASOL
  3. METHOTREXATE. [Concomitant]
     Active Substance: METHOTREXATE
  4. DUPIXENT [Suspect]
     Active Substance: DUPILUMAB
     Dosage: 300 MG, QOW
     Route: 058
  5. AMLODIPINE;OLMESARTAN [Concomitant]
     Active Substance: AMLODIPINE\OLMESARTAN
  6. PREDNISONE. [Concomitant]
     Active Substance: PREDNISONE
  7. FOLIC ACID. [Concomitant]
     Active Substance: FOLIC ACID
  8. ROSUVASTATIN. [Concomitant]
     Active Substance: ROSUVASTATIN
  9. METHOXSALEN. [Concomitant]
     Active Substance: METHOXSALEN

REACTIONS (2)
  - Dermatitis atopic [Unknown]
  - Drug ineffective [Unknown]

NARRATIVE: CASE EVENT DATE: 2020
